FAERS Safety Report 5906027-2 (Version None)
Quarter: 2008Q4

REPORT INFORMATION
  Report Type: 
  Country: None (occurrence: None)
  Receive Date: 20081002
  Receipt Date: 20080914
  Transmission Date: 20090506
  Serious: Yes (Hospitalization)
  Sender: FDA-Public Use
  Company Number: US-BAYER-200827452GPV

PATIENT
  Age: 75 Year
  Sex: Male

DRUGS (4)
  1. SORAFENIB [Suspect]
     Indication: HEPATIC NEOPLASM MALIGNANT
     Dates: start: 20080728, end: 20080801
  2. SORAFENIB [Suspect]
     Dates: start: 20080701, end: 20080728
  3. INSULIN [Concomitant]
     Indication: TYPE 1 DIABETES MELLITUS
  4. GEMCITABINE HCL [Concomitant]
     Dates: start: 20080701

REACTIONS (7)
  - CEREBROVASCULAR ACCIDENT [None]
  - CONFUSIONAL STATE [None]
  - DIARRHOEA [None]
  - FATIGUE [None]
  - INCOHERENT [None]
  - RASH [None]
  - URINARY INCONTINENCE [None]
